FAERS Safety Report 11177162 (Version 1)
Quarter: 2015Q2

REPORT INFORMATION
  Report Type: Spontaneous
  Country: GB (occurrence: None)
  Receive Date: 20150608
  Receipt Date: 20150608
  Transmission Date: 20150821
  Serious: Yes (Hospitalization, Other)
  Sender: FDA-Public Use
  Company Number: GB-H14001-15-00836

PATIENT
  Age: 18 Year
  Sex: Male

DRUGS (2)
  1. DOXYCYCLINE. [Concomitant]
     Active Substance: DOXYCYCLINE
  2. CIPROFLOXACIN (CIPROFLOXACIN) (UNKNOWN) (CIPROFLOXACIN) [Suspect]
     Active Substance: CIPROFLOXACIN
     Indication: KIDNEY INFECTION
     Dates: start: 20150505, end: 20150510

REACTIONS (6)
  - Hepatitis [None]
  - Anaphylactic reaction [None]
  - Pyrexia [None]
  - Splenomegaly [None]
  - Viral infection [None]
  - Tonsillitis [None]

NARRATIVE: CASE EVENT DATE: 201505
